FAERS Safety Report 9536039 (Version 1)
Quarter: 2013Q2

REPORT INFORMATION
  Report Type: Spontaneous
  Country: US (occurrence: None)
  Receive Date: 20130507
  Receipt Date: 20130507
  Transmission Date: 20140414
  Serious: Yes (Other)
  Sender: FDA-Public Use
  Company Number: PHEH2012US024089

PATIENT
  Sex: Male

DRUGS (1)
  1. AFINITOR (RAD) [Suspect]
     Indication: METASTATIC RENAL CELL CARCINOMA
     Dates: end: 201210

REACTIONS (2)
  - Malignant neoplasm progression [None]
  - Metastatic renal cell carcinoma [None]
